FAERS Safety Report 17794831 (Version 1)
Quarter: 2020Q2

REPORT INFORMATION
  Report Type: Spontaneous
  Country: DE (occurrence: DE)
  Receive Date: 20200516
  Receipt Date: 20200516
  Transmission Date: 20200714
  Serious: Yes (Hospitalization)
  Sender: FDA-Public Use
  Company Number: DE-TEVA-2020-DE-1234390

PATIENT
  Age: 83 Year
  Sex: Male
  Weight: 96 kg

DRUGS (15)
  1. PREDNISOLON [Concomitant]
     Active Substance: PREDNISOLONE
     Dosage: 20 MG
     Route: 048
  2. KARISON CRINALE [Concomitant]
     Dosage: 0.5 MG,
     Route: 061
  3. THYRONAJOD 75 [Concomitant]
     Dosage: .5 DOSAGE FORMS DAILY; 196|75 MCG, 0.5-0-0-0
     Route: 048
  4. ACETYLSALICYLSAURE [Concomitant]
     Active Substance: ASPIRIN
     Dosage: 100 MILLIGRAM DAILY;  1-0-0-0
     Route: 048
  5. PANTOPRAZOL [Concomitant]
     Active Substance: PANTOPRAZOLE SODIUM
     Dosage: 20 MILLIGRAM DAILY;  1-0-0-0
     Route: 048
  6. SPASMEX [Concomitant]
     Dosage: 45 MG, 0.3-0.3-0.3-0
     Route: 048
  7. CETIRIZIN 10MG [Concomitant]
     Dosage: 10 MILLIGRAM DAILY; 1-0-0-0
     Route: 048
  8. GABAPENTIN. [Concomitant]
     Active Substance: GABAPENTIN
     Dosage: 900 MILLIGRAM DAILY;  1-1-1-0
     Route: 048
  9. TARGIN 20 MG/10 MG [Concomitant]
     Active Substance: NALOXONE HYDROCHLORIDE\OXYCODONE HYDROCHLORIDE
     Dosage: 1 DOSAGE FORMS DAILY; 10|20 MG, 1-0-0-0
     Route: 048
  10. DAPSON [Suspect]
     Active Substance: DAPSONE
     Dosage: 100 MILLIGRAM DAILY; 2-0-0-0
     Route: 048
  11. VIGANTOL 1000I.E. VITAMIN D3 [Concomitant]
     Dosage: 1000 IE, 1-0-0-0
     Route: 048
  12. OXYCODON AL 10MG [Concomitant]
     Dosage: 10 MILLIGRAM DAILY;  0-0-1-0
     Route: 048
  13. TORASEMID [Suspect]
     Active Substance: TORSEMIDE
     Dosage: 10 MG,
     Route: 048
  14. DAPSON [Suspect]
     Active Substance: DAPSONE
     Dosage: 50 MILLIGRAM DAILY;  1-0-0-0
     Route: 048
  15. CANDESARTAN. [Concomitant]
     Active Substance: CANDESARTAN
     Dosage: 32 MILLIGRAM DAILY; 1-0-1-0
     Route: 048

REACTIONS (6)
  - Blood count abnormal [Unknown]
  - Dehydration [Unknown]
  - General physical health deterioration [Unknown]
  - Dysuria [Unknown]
  - Cough [Unknown]
  - Asthenia [Unknown]
